FAERS Safety Report 12988793 (Version 4)
Quarter: 2017Q1

REPORT INFORMATION
  Report Type: Report from Study
  Country: US (occurrence: US)
  Receive Date: 20161130
  Receipt Date: 20170103
  Transmission Date: 20170428
  Serious: No
  Sender: FDA-Public Use
  Company Number: US-AMGEN-USASL2016168186

PATIENT
  Age: 41 Year
  Sex: Male

DRUGS (2)
  1. ENBREL [Suspect]
     Active Substance: ETANERCEPT
     Indication: ANKYLOSING SPONDYLITIS
     Dosage: 50 MG, QWK
     Route: 065
  2. ENBREL [Suspect]
     Active Substance: ETANERCEPT
     Indication: RHEUMATOID ARTHRITIS

REACTIONS (19)
  - Erythema [Unknown]
  - Cough [Unknown]
  - Arthralgia [Unknown]
  - Swelling face [Unknown]
  - Dyspnoea [Recovered/Resolved]
  - Chest discomfort [Unknown]
  - Drug hypersensitivity [Unknown]
  - Rash erythematous [Not Recovered/Not Resolved]
  - Myalgia [Unknown]
  - Local swelling [Unknown]
  - Impaired work ability [Unknown]
  - Insomnia [Unknown]
  - Peripheral swelling [Unknown]
  - Weight increased [Unknown]
  - Acne [Unknown]
  - Abdominal pain [Unknown]
  - Migraine [Unknown]
  - Fatigue [Unknown]
  - Chest pain [Unknown]

NARRATIVE: CASE EVENT DATE: 201611
